FAERS Safety Report 4700714-X (Version None)
Quarter: 2005Q2

REPORT INFORMATION
  Report Type: 
  Country: None (occurrence: None)
  Receive Date: 20050627
  Receipt Date: 20050616
  Transmission Date: 20051028
  Serious: Yes (Disabling)
  Sender: FDA-Public Use
  Company Number: 2005FR-00027

PATIENT
  Age: 59 Year
  Sex: Male
  Weight: 102 kg

DRUGS (4)
  1. ASPIRIN [Suspect]
     Indication: DUODENAL ULCER
     Dosage: 75MG, ORAL
     Route: 048
     Dates: start: 20050421, end: 20050424
  2. DOXAZOSIN [Concomitant]
  3. CANDESARTAN [Concomitant]
  4. ALLOPURINOL [Concomitant]

REACTIONS (8)
  - CHEST DISCOMFORT [None]
  - DIZZINESS [None]
  - DYSPNOEA [None]
  - EPISTAXIS [None]
  - FEELING ABNORMAL [None]
  - JAUNDICE [None]
  - MALAISE [None]
  - TREMOR [None]
